FAERS Safety Report 10041556 (Version 2)
Quarter: 2014Q2

REPORT INFORMATION
  Report Type: Spontaneous
  Country: PL (occurrence: PL)
  Receive Date: 20140327
  Receipt Date: 20140402
  Transmission Date: 20141212
  Serious: Yes (Life-Threatening)
  Sender: FDA-Public Use
  Company Number: PL-NOVOPROD-403888

PATIENT
  Age: 42 Year
  Sex: Male
  Weight: 101 kg

DRUGS (4)
  1. VICTOZA [Suspect]
     Indication: DIABETES MELLITUS
     Dosage: 1.2 MG, QD
     Route: 065
     Dates: start: 20140314
  2. VICTOZA [Suspect]
     Dosage: 0.6 MG, UNK
     Route: 065
  3. VENLAFAXINE [Concomitant]
     Dosage: PROLONGED-RELEASE TABLETS, 75 MG, UNK
  4. METFORMIN [Concomitant]
     Dosage: 1000 MG, TID
     Route: 058

REACTIONS (3)
  - Suicidal ideation [Recovered/Resolved]
  - Blood glucose decreased [Recovered/Resolved]
  - Drug prescribing error [Recovered/Resolved]
